FAERS Safety Report 25545967 (Version 1)
Quarter: 2025Q3

REPORT INFORMATION
  Report Type: Spontaneous
  Country: US (occurrence: US)
  Receive Date: 20250712
  Receipt Date: 20250712
  Transmission Date: 20251021
  Serious: Yes (Other)
  Sender: AMGEN
  Company Number: US-AMGEN-USASP2025133104

PATIENT
  Age: 47 Year
  Sex: Male

DRUGS (7)
  1. PREDNISONE [Suspect]
     Active Substance: PREDNISONE
     Indication: Sarcoidosis
     Dosage: 60 MILLIGRAM, QD
     Route: 065
  2. PREDNISONE [Suspect]
     Active Substance: PREDNISONE
     Route: 065
  3. INFLIXIMAB [Suspect]
     Active Substance: INFLIXIMAB
     Indication: Sarcoidosis
     Dosage: 7.5 MILLIGRAM/KILOGRAM, Q4WK
     Route: 065
  4. ADALIMUMAB [Suspect]
     Active Substance: ADALIMUMAB
     Indication: Sarcoidosis
     Dosage: 40 MILLIGRAM, Q2WK
     Route: 065
  5. METHOTREXATE [Concomitant]
     Active Substance: METHOTREXATE
     Indication: Sarcoidosis
     Dosage: 15 MILLIGRAM, QWK
     Route: 065
  6. METHOTREXATE [Concomitant]
     Active Substance: METHOTREXATE
     Dosage: 10 MILLIGRAM, QWK
     Route: 065
  7. AZATHIOPRINE [Concomitant]
     Active Substance: AZATHIOPRINE
     Indication: Sarcoidosis
     Dosage: 50 MILLIGRAM, QD
     Route: 065

REACTIONS (10)
  - Neurosarcoidosis [Unknown]
  - Sarcoidosis of lymph node [Unknown]
  - Cardiac sarcoidosis [Unknown]
  - Liver sarcoidosis [Unknown]
  - Splenic sarcoidosis [Unknown]
  - Sarcoidosis [Unknown]
  - Weight increased [Unknown]
  - Off label use [Unknown]
  - Drug specific antibody present [Unknown]
  - Drug ineffective for unapproved indication [Unknown]
